FAERS Safety Report 5470899-9 (Version None)
Quarter: 2007Q3

REPORT INFORMATION
  Report Type: 
  Country: None (occurrence: None)
  Receive Date: 20070928
  Receipt Date: 20070926
  Transmission Date: 20080115
  Serious: Yes (Other)
  Sender: FDA-Public Use
  Company Number: US-BRISTOL-MYERS SQUIBB COMPANY-13831490

PATIENT
  Age: 51 Year
  Sex: Male
  Weight: 64 kg

DRUGS (4)
  1. BARACLUDE [Suspect]
     Indication: HEPATITIS B
     Dosage: STOPPED ON 29NOV2005 AND RESTARTED ON 25MAY2006.
     Route: 048
     Dates: start: 20050830, end: 20070605
  2. LISINOPRIL [Concomitant]
  3. RANITIDINE HCL [Concomitant]
  4. HYDROCHLOROTHIAZIDE [Concomitant]

REACTIONS (2)
  - BLOOD HIV RNA DECREASED [None]
  - DRUG RESISTANCE [None]
